FAERS Safety Report 6281286-8 (Version None)
Quarter: 2009Q3

REPORT INFORMATION
  Report Type: 
  Country: None (occurrence: None)
  Receive Date: 20090724
  Receipt Date: 20090410
  Transmission Date: 20100115
  Serious: Yes (Other)
  Sender: FDA-Public Use
  Company Number: A0779244A

PATIENT
  Age: 63 Year
  Sex: Female
  Weight: 90.9 kg

DRUGS (8)
  1. AVANDIA [Suspect]
     Indication: DIABETES MELLITUS
     Dosage: 4MG PER DAY
     Route: 048
     Dates: start: 20030430, end: 20070617
  2. ORPHENADRINE CITRATE [Concomitant]
  3. AMOXICILLIN [Concomitant]
  4. OXYCONTIN [Concomitant]
  5. SULINDAC [Concomitant]
  6. DICLOFENAC SODIUM [Concomitant]
  7. ZITHROMAX [Concomitant]
  8. POTASSIUM CHLORIDE [Concomitant]

REACTIONS (1)
  - CARDIAC FAILURE CONGESTIVE [None]
